FAERS Safety Report 7250763-5 (Version None)
Quarter: 2011Q1

REPORT INFORMATION
  Report Type: 
  Country: None (occurrence: None)
  Receive Date: 20110128
  Receipt Date: 20110118
  Transmission Date: 20110831
  Serious: Yes (Hospitalization, Other)
  Sender: FDA-Public Use
  Company Number: US-PERRIGO-11US000431

PATIENT
  Sex: Male
  Weight: 13.605 kg

DRUGS (1)
  1. CHILDREN'S IBUPROFEN [Suspect]
     Indication: NASOPHARYNGITIS
     Dosage: UNKNOWN, ONCE
     Route: 048
     Dates: start: 20110107, end: 20110107

REACTIONS (4)
  - SWELLING FACE [None]
  - ABNORMAL BEHAVIOUR [None]
  - EYE SWELLING [None]
  - HYPERSENSITIVITY [None]
